FAERS Safety Report 7266345-5 (Version None)
Quarter: 2011Q1

REPORT INFORMATION
  Report Type: 
  Country: None (occurrence: None)
  Receive Date: 20110131
  Receipt Date: 20101217
  Transmission Date: 20110831
  Serious: Yes (Death, Life-Threatening, Other)
  Sender: FDA-Public Use
  Company Number: US-BAXTER-2010BH001307

PATIENT
  Age: 70 Year
  Sex: Male
  Weight: 116 kg

DRUGS (164)
  1. HEPARIN SODIUM INJECTION [Suspect]
     Indication: AORTIC VALVE REPLACEMENT
     Route: 040
     Dates: start: 20080112, end: 20080112
  2. HEPARIN SODIUM INJECTION [Suspect]
     Route: 042
     Dates: start: 20090428, end: 20090428
  3. HEPARIN SODIUM INJECTION [Suspect]
     Route: 042
     Dates: start: 20090428, end: 20090428
  4. HEPARIN SODIUM INJECTION [Suspect]
     Route: 065
     Dates: start: 20080523
  5. HEPARIN SODIUM INJECTION [Suspect]
     Route: 065
     Dates: start: 20080523
  6. HEPARIN SODIUM INJECTION [Suspect]
     Route: 042
     Dates: start: 20080112, end: 20080115
  7. HEPARIN SODIUM INJECTION [Suspect]
     Route: 042
     Dates: start: 20090428, end: 20090428
  8. HEPARIN SODIUM INJECTION [Suspect]
     Route: 065
     Dates: start: 20080116, end: 20080116
  9. HEPARIN SODIUM INJECTION [Suspect]
     Route: 065
     Dates: start: 20080116, end: 20080116
  10. HEPARIN SODIUM INJECTION [Suspect]
     Route: 065
     Dates: start: 20080208, end: 20080208
  11. HEPARIN SODIUM INJECTION [Suspect]
     Route: 065
     Dates: start: 20080208, end: 20080208
  12. HEPARIN SODIUM INJECTION [Suspect]
     Route: 065
     Dates: start: 20080208, end: 20080208
  13. HEPARIN SODIUM INJECTION [Suspect]
     Route: 065
     Dates: start: 20080208, end: 20080208
  14. HEPARIN SODIUM INJECTION [Suspect]
     Route: 042
     Dates: start: 20080116, end: 20080116
  15. HEPARIN SODIUM INJECTION [Suspect]
     Route: 042
     Dates: start: 20080116, end: 20080116
  16. HEPARIN SODIUM INJECTION [Suspect]
     Route: 042
     Dates: start: 20080120, end: 20080120
  17. HEPARIN SODIUM INJECTION [Suspect]
     Route: 042
     Dates: start: 20080120, end: 20080120
  18. METOPROLOL TARTRATE [Concomitant]
     Indication: PRODUCT USED FOR UNKNOWN INDICATION
     Route: 065
  19. NOREPINEPHRINE BITARTRATE [Concomitant]
     Indication: PRODUCT USED FOR UNKNOWN INDICATION
     Route: 042
  20. HEPARIN SODIUM INJECTION [Suspect]
     Indication: AORTIC STENOSIS
     Route: 040
     Dates: start: 20080112, end: 20080112
  21. HEPARIN SODIUM INJECTION [Suspect]
     Indication: INTRAVENOUS CATHETER MANAGEMENT
     Route: 040
     Dates: start: 20080112, end: 20080112
  22. HEPARIN SODIUM INJECTION [Suspect]
     Route: 040
     Dates: start: 20080112, end: 20080112
  23. HEPARIN SODIUM INJECTION [Suspect]
     Route: 040
     Dates: start: 20080114, end: 20080114
  24. HEPARIN SODIUM INJECTION [Suspect]
     Route: 040
     Dates: start: 20080116, end: 20080116
  25. HEPARIN SODIUM INJECTION [Suspect]
     Route: 065
     Dates: start: 20080523
  26. HEPARIN SODIUM INJECTION [Suspect]
     Route: 065
     Dates: start: 20080120, end: 20080120
  27. HEPARIN SODIUM INJECTION [Suspect]
     Route: 065
     Dates: start: 20080120, end: 20080120
  28. HEPARIN SODIUM INJECTION [Suspect]
     Route: 042
     Dates: start: 20080116, end: 20080116
  29. HEPARIN SODIUM INJECTION [Suspect]
     Route: 042
     Dates: start: 20080116, end: 20080116
  30. HEPARIN SODIUM INJECTION [Suspect]
     Route: 042
     Dates: start: 20080120, end: 20080120
  31. HEPARIN SODIUM INJECTION [Suspect]
     Route: 042
     Dates: start: 20080120, end: 20080120
  32. PANTOPRAZOLE [Concomitant]
     Indication: PRODUCT USED FOR UNKNOWN INDICATION
     Route: 065
  33. NITROGLYCERIN [Concomitant]
     Indication: PRODUCT USED FOR UNKNOWN INDICATION
     Route: 065
  34. COUMADIN [Concomitant]
     Indication: PRODUCT USED FOR UNKNOWN INDICATION
     Route: 048
  35. HEPARIN SODIUM INJECTION [Suspect]
     Route: 040
     Dates: start: 20080114, end: 20080114
  36. HEPARIN SODIUM INJECTION [Suspect]
     Route: 040
     Dates: start: 20080114, end: 20080114
  37. HEPARIN SODIUM INJECTION [Suspect]
     Route: 040
     Dates: start: 20080114, end: 20080114
  38. HEPARIN SODIUM INJECTION [Suspect]
     Route: 042
     Dates: start: 20090428, end: 20090428
  39. HEPARIN SODIUM INJECTION [Suspect]
     Route: 065
     Dates: start: 20080523
  40. HEPARIN SODIUM INJECTION [Suspect]
     Route: 065
     Dates: start: 20080523
  41. HEPARIN SODIUM INJECTION [Suspect]
     Route: 042
     Dates: start: 20090428, end: 20090428
  42. HEPARIN SODIUM INJECTION [Suspect]
     Route: 065
     Dates: start: 20080116, end: 20080116
  43. HEPARIN SODIUM INJECTION [Suspect]
     Route: 065
     Dates: start: 20080116, end: 20080116
  44. HEPARIN SODIUM INJECTION [Suspect]
     Route: 065
     Dates: start: 20080120, end: 20080120
  45. HEPARIN SODIUM INJECTION [Suspect]
     Route: 065
     Dates: start: 20080208, end: 20080208
  46. HEPARIN SODIUM INJECTION [Suspect]
     Route: 065
     Dates: start: 20080208, end: 20080208
  47. HEPARIN SODIUM INJECTION [Suspect]
     Route: 065
     Dates: start: 20080208, end: 20080208
  48. HEPARIN SODIUM INJECTION [Suspect]
     Route: 042
     Dates: start: 20080116, end: 20080116
  49. HEPARIN SODIUM INJECTION [Suspect]
     Route: 042
     Dates: start: 20080116, end: 20080116
  50. HEPARIN SODIUM INJECTION [Suspect]
     Route: 042
     Dates: start: 20080116, end: 20080116
  51. HEPARIN SODIUM INJECTION [Suspect]
     Route: 042
     Dates: start: 20080116, end: 20080116
  52. CRESTOR [Concomitant]
     Indication: PRODUCT USED FOR UNKNOWN INDICATION
     Route: 065
  53. ALBUTEROL SULFATE [Concomitant]
     Indication: PRODUCT USED FOR UNKNOWN INDICATION
     Route: 065
  54. NORMAL SALINE [Concomitant]
     Indication: PRODUCT USED FOR UNKNOWN INDICATION
     Route: 065
  55. POTASSIUM CHLORIDE [Concomitant]
     Indication: PRODUCT USED FOR UNKNOWN INDICATION
     Route: 065
  56. LANSOPRAZOLE [Concomitant]
     Indication: PRODUCT USED FOR UNKNOWN INDICATION
     Route: 065
  57. DOPAMINE [Concomitant]
     Indication: PRODUCT USED FOR UNKNOWN INDICATION
     Route: 065
  58. INSULIN [Concomitant]
     Indication: PRODUCT USED FOR UNKNOWN INDICATION
     Route: 065
  59. HEPARIN SODIUM INJECTION [Suspect]
     Indication: STERNOTOMY
     Route: 040
     Dates: start: 20080112, end: 20080112
  60. HEPARIN SODIUM INJECTION [Suspect]
     Route: 040
     Dates: start: 20080114, end: 20080114
  61. HEPARIN SODIUM INJECTION [Suspect]
     Route: 040
     Dates: start: 20080114, end: 20080114
  62. HEPARIN SODIUM INJECTION [Suspect]
     Route: 040
     Dates: start: 20080116, end: 20080116
  63. HEPARIN SODIUM INJECTION [Suspect]
     Route: 040
     Dates: start: 20080116, end: 20080116
  64. HEPARIN SODIUM INJECTION [Suspect]
     Route: 042
     Dates: start: 20090428, end: 20090428
  65. HEPARIN SODIUM INJECTION [Suspect]
     Route: 065
     Dates: start: 20080523
  66. HEPARIN SODIUM INJECTION [Suspect]
     Route: 042
     Dates: start: 20080112, end: 20080115
  67. HEPARIN SODIUM INJECTION [Suspect]
     Route: 042
     Dates: start: 20080112, end: 20080115
  68. HEPARIN SODIUM INJECTION [Suspect]
     Route: 065
     Dates: start: 20080116, end: 20080116
  69. HEPARIN SODIUM INJECTION [Suspect]
     Route: 065
     Dates: start: 20080116, end: 20080116
  70. HEPARIN SODIUM INJECTION [Suspect]
     Route: 065
     Dates: start: 20080116, end: 20080116
  71. HEPARIN SODIUM INJECTION [Suspect]
     Route: 065
     Dates: start: 20080120, end: 20080120
  72. HEPARIN SODIUM INJECTION [Suspect]
     Route: 065
     Dates: start: 20080120, end: 20080120
  73. HEPARIN SODIUM INJECTION [Suspect]
     Route: 065
     Dates: start: 20080208, end: 20080208
  74. HEPARIN SODIUM INJECTION [Suspect]
     Route: 065
     Dates: start: 20080208, end: 20080208
  75. HEPARIN SODIUM INJECTION [Suspect]
     Route: 042
     Dates: start: 20080116, end: 20080116
  76. LASIX [Concomitant]
     Indication: PRODUCT USED FOR UNKNOWN INDICATION
     Route: 065
  77. RAMIPRIL [Concomitant]
     Indication: PRODUCT USED FOR UNKNOWN INDICATION
     Route: 065
  78. IMDUR [Concomitant]
     Indication: PRODUCT USED FOR UNKNOWN INDICATION
     Route: 065
  79. MAGNESIUM HYDROXIDE [Concomitant]
     Indication: PRODUCT USED FOR UNKNOWN INDICATION
     Route: 065
  80. EPINEPHRINE [Concomitant]
     Indication: PRODUCT USED FOR UNKNOWN INDICATION
     Route: 042
  81. SODIUM NITROPRUSSIDE [Concomitant]
     Indication: PRODUCT USED FOR UNKNOWN INDICATION
     Route: 042
  82. AMARYL [Concomitant]
     Indication: PRODUCT USED FOR UNKNOWN INDICATION
     Route: 048
  83. HEPARIN SODIUM INJECTION [Suspect]
     Indication: VENOUS LIGATION
     Route: 040
     Dates: start: 20080112, end: 20080112
  84. HEPARIN SODIUM INJECTION [Suspect]
     Indication: ACUTE MYOCARDIAL INFARCTION
     Route: 040
     Dates: start: 20080112, end: 20080112
  85. HEPARIN SODIUM INJECTION [Suspect]
     Route: 040
     Dates: start: 20080114, end: 20080114
  86. HEPARIN SODIUM INJECTION [Suspect]
     Route: 040
     Dates: start: 20080116, end: 20080116
  87. HEPARIN SODIUM INJECTION [Suspect]
     Route: 040
     Dates: start: 20080116, end: 20080116
  88. HEPARIN SODIUM INJECTION [Suspect]
     Route: 040
     Dates: start: 20080116, end: 20080116
  89. HEPARIN SODIUM INJECTION [Suspect]
     Route: 042
     Dates: start: 20090428, end: 20090428
  90. HEPARIN SODIUM INJECTION [Suspect]
     Route: 042
     Dates: start: 20090428, end: 20090428
  91. HEPARIN SODIUM INJECTION [Suspect]
     Route: 065
     Dates: start: 20080523
  92. HEPARIN SODIUM INJECTION [Suspect]
     Route: 042
     Dates: start: 20080112, end: 20080115
  93. HEPARIN SODIUM INJECTION [Suspect]
     Route: 042
     Dates: start: 20090428, end: 20090428
  94. HEPARIN SODIUM INJECTION [Suspect]
     Route: 065
     Dates: start: 20080116, end: 20080116
  95. HEPARIN SODIUM INJECTION [Suspect]
     Route: 065
     Dates: start: 20080120, end: 20080120
  96. HEPARIN SODIUM INJECTION [Suspect]
     Route: 065
     Dates: start: 20080120, end: 20080120
  97. HEPARIN SODIUM INJECTION [Suspect]
     Route: 042
     Dates: start: 20080116, end: 20080116
  98. HEPARIN SODIUM INJECTION [Suspect]
     Route: 042
     Dates: start: 20080116, end: 20080116
  99. HEPARIN SODIUM INJECTION [Suspect]
     Route: 042
     Dates: start: 20080120, end: 20080120
  100. HEPARIN SODIUM INJECTION [Suspect]
     Route: 042
     Dates: start: 20080120, end: 20080120
  101. HEPARIN SODIUM INJECTION [Suspect]
     Route: 042
     Dates: start: 20080120, end: 20080120
  102. HEPARIN SODIUM 1,000 UNITS AND SODIUM CHLORIDE 0.9% [Suspect]
     Indication: PRODUCT USED FOR UNKNOWN INDICATION
     Route: 042
     Dates: start: 20090428, end: 20090428
  103. GLUCOVANCE [Concomitant]
     Indication: PRODUCT USED FOR UNKNOWN INDICATION
     Route: 065
  104. OXYCODONE HYDROCHLORIDE [Concomitant]
     Indication: PRODUCT USED FOR UNKNOWN INDICATION
     Route: 065
  105. PROPOFOL [Concomitant]
     Indication: PRODUCT USED FOR UNKNOWN INDICATION
     Route: 065
  106. MEPERIDINE HCL [Concomitant]
     Indication: PRODUCT USED FOR UNKNOWN INDICATION
     Route: 065
  107. AMIODARONE HYDROCHLORIDE [Concomitant]
     Indication: PRODUCT USED FOR UNKNOWN INDICATION
     Route: 065
  108. NYSTATIN [Concomitant]
     Indication: PRODUCT USED FOR UNKNOWN INDICATION
     Route: 065
  109. AMIODARONE [Concomitant]
     Indication: PRODUCT USED FOR UNKNOWN INDICATION
     Route: 042
  110. HEPARIN SODIUM INJECTION [Suspect]
     Indication: INTRA-AORTIC BALLOON PLACEMENT
     Route: 040
     Dates: start: 20080112, end: 20080112
  111. HEPARIN SODIUM INJECTION [Suspect]
     Route: 040
     Dates: start: 20080116, end: 20080116
  112. HEPARIN SODIUM INJECTION [Suspect]
     Route: 042
     Dates: start: 20090428, end: 20090428
  113. HEPARIN SODIUM INJECTION [Suspect]
     Route: 042
     Dates: start: 20090428, end: 20090428
  114. HEPARIN SODIUM INJECTION [Suspect]
     Route: 065
     Dates: start: 20080523
  115. HEPARIN SODIUM INJECTION [Suspect]
     Route: 042
     Dates: start: 20080112, end: 20080115
  116. HEPARIN SODIUM INJECTION [Suspect]
     Route: 042
     Dates: start: 20080112, end: 20080115
  117. HEPARIN SODIUM INJECTION [Suspect]
     Route: 042
     Dates: start: 20090428, end: 20090428
  118. HEPARIN SODIUM INJECTION [Suspect]
     Route: 065
     Dates: start: 20080116, end: 20080116
  119. HEPARIN SODIUM INJECTION [Suspect]
     Route: 065
     Dates: start: 20080120, end: 20080120
  120. HEPARIN SODIUM INJECTION [Suspect]
     Route: 065
     Dates: start: 20080120, end: 20080120
  121. HEPARIN SODIUM INJECTION [Suspect]
     Route: 042
     Dates: start: 20080116, end: 20080116
  122. HEPARIN SODIUM INJECTION [Suspect]
     Route: 042
     Dates: start: 20080116, end: 20080116
  123. HEPARIN SODIUM INJECTION [Suspect]
     Route: 042
     Dates: start: 20080116, end: 20080116
  124. HEPARIN SODIUM INJECTION [Suspect]
     Route: 042
     Dates: start: 20080116, end: 20080116
  125. ACETAMINOPHEN W/ PROPOXYPHENE HCL [Concomitant]
     Indication: PRODUCT USED FOR UNKNOWN INDICATION
     Route: 065
  126. ASA [Concomitant]
     Indication: PRODUCT USED FOR UNKNOWN INDICATION
     Route: 048
  127. CIPRO [Concomitant]
     Indication: PRODUCT USED FOR UNKNOWN INDICATION
     Route: 048
  128. HEPARIN SODIUM INJECTION [Suspect]
     Route: 040
     Dates: start: 20080114, end: 20080114
  129. HEPARIN SODIUM INJECTION [Suspect]
     Route: 040
     Dates: start: 20080116, end: 20080116
  130. HEPARIN SODIUM INJECTION [Suspect]
     Route: 040
     Dates: start: 20080116, end: 20080116
  131. HEPARIN SODIUM INJECTION [Suspect]
     Route: 042
     Dates: start: 20090428, end: 20090428
  132. HEPARIN SODIUM INJECTION [Suspect]
     Route: 042
     Dates: start: 20080112, end: 20080115
  133. HEPARIN SODIUM INJECTION [Suspect]
     Route: 042
     Dates: start: 20090428, end: 20090428
  134. HEPARIN SODIUM INJECTION [Suspect]
     Route: 042
     Dates: start: 20090428, end: 20090428
  135. HEPARIN SODIUM INJECTION [Suspect]
     Route: 042
     Dates: start: 20090428, end: 20090428
  136. HEPARIN SODIUM INJECTION [Suspect]
     Route: 042
     Dates: start: 20090428, end: 20090428
  137. HEPARIN SODIUM INJECTION [Suspect]
     Route: 065
     Dates: start: 20080208, end: 20080208
  138. HEPARIN SODIUM INJECTION [Suspect]
     Route: 042
     Dates: start: 20080116, end: 20080116
  139. HEPARIN SODIUM INJECTION [Suspect]
     Route: 042
     Dates: start: 20080116, end: 20080116
  140. HEPARIN SODIUM INJECTION [Suspect]
     Route: 042
     Dates: start: 20080116, end: 20080116
  141. HEPARIN SODIUM INJECTION [Suspect]
     Route: 042
     Dates: start: 20080116, end: 20080116
  142. HEPARIN SODIUM INJECTION [Suspect]
     Route: 042
     Dates: start: 20080120, end: 20080120
  143. HEPARIN SODIUM INJECTION [Suspect]
     Route: 042
     Dates: start: 20080120, end: 20080120
  144. PLAVIX [Suspect]
     Indication: PRODUCT USED FOR UNKNOWN INDICATION
     Route: 065
  145. HEPARIN SODIUM INJECTION [Suspect]
     Indication: CORONARY ARTERY BYPASS
     Route: 040
     Dates: start: 20080112, end: 20080112
  146. HEPARIN SODIUM INJECTION [Suspect]
     Indication: CAROTID ENDARTERECTOMY
     Route: 040
     Dates: start: 20080112, end: 20080112
  147. HEPARIN SODIUM INJECTION [Suspect]
     Route: 040
     Dates: start: 20080114, end: 20080114
  148. HEPARIN SODIUM INJECTION [Suspect]
     Route: 040
     Dates: start: 20080114, end: 20080114
  149. HEPARIN SODIUM INJECTION [Suspect]
     Route: 040
     Dates: start: 20080116, end: 20080116
  150. HEPARIN SODIUM INJECTION [Suspect]
     Route: 042
     Dates: start: 20090428, end: 20090428
  151. HEPARIN SODIUM INJECTION [Suspect]
     Route: 065
     Dates: start: 20080523
  152. HEPARIN SODIUM INJECTION [Suspect]
     Route: 065
     Dates: start: 20080523
  153. HEPARIN SODIUM INJECTION [Suspect]
     Route: 042
     Dates: start: 20080112, end: 20080115
  154. HEPARIN SODIUM INJECTION [Suspect]
     Route: 042
     Dates: start: 20080112, end: 20080115
  155. HEPARIN SODIUM INJECTION [Suspect]
     Route: 042
     Dates: start: 20080112, end: 20080115
  156. HEPARIN SODIUM INJECTION [Suspect]
     Route: 042
     Dates: start: 20090428, end: 20090428
  157. HEPARIN SODIUM INJECTION [Suspect]
     Route: 042
     Dates: start: 20090428, end: 20090428
  158. HEPARIN SODIUM INJECTION [Suspect]
     Route: 065
     Dates: start: 20080116, end: 20080116
  159. HEPARIN SODIUM INJECTION [Suspect]
     Route: 065
     Dates: start: 20080120, end: 20080120
  160. HEPARIN SODIUM INJECTION [Suspect]
     Route: 042
     Dates: start: 20080116, end: 20080116
  161. HEPARIN SODIUM INJECTION [Suspect]
     Route: 042
     Dates: start: 20080120, end: 20080120
  162. PLAVIX [Concomitant]
     Route: 065
  163. COREG [Concomitant]
     Indication: PRODUCT USED FOR UNKNOWN INDICATION
     Route: 065
  164. ONDANSETRON HYDROCHLORIDE [Concomitant]
     Indication: PRODUCT USED FOR UNKNOWN INDICATION
     Route: 065

REACTIONS (31)
  - ISCHAEMIC CARDIOMYOPATHY [None]
  - CORONARY ARTERY DISEASE [None]
  - VENTRICULAR TACHYCARDIA [None]
  - DEEP VEIN THROMBOSIS [None]
  - ARTERIOSCLEROSIS CORONARY ARTERY [None]
  - HYPOTENSION [None]
  - MENTAL STATUS CHANGES [None]
  - HAEMODYNAMIC INSTABILITY [None]
  - DYSPNOEA [None]
  - SERRATIA BACTERAEMIA [None]
  - WOUND SECRETION [None]
  - VENTRICULAR FIBRILLATION [None]
  - ARRHYTHMIA [None]
  - HEPARIN-INDUCED THROMBOCYTOPENIA [None]
  - WHEEZING [None]
  - NAUSEA [None]
  - RESPIRATORY FAILURE [None]
  - UNRESPONSIVE TO STIMULI [None]
  - FLUID OVERLOAD [None]
  - HYPONATRAEMIA [None]
  - OEDEMA PERIPHERAL [None]
  - VASCULAR GRAFT OCCLUSION [None]
  - ANAEMIA [None]
  - CARDIAC TAMPONADE [None]
  - PLEURAL EFFUSION [None]
  - VISION BLURRED [None]
  - TRANSIENT ISCHAEMIC ATTACK [None]
  - POST PROCEDURAL HAEMORRHAGE [None]
  - THROMBOSIS [None]
  - HAEMATOMA [None]
  - CHILLS [None]
